FAERS Safety Report 10690087 (Version 1)
Quarter: 2015Q1

REPORT INFORMATION
  Report Type: Spontaneous
  Country: US (occurrence: US)
  Receive Date: 20150105
  Receipt Date: 20150105
  Transmission Date: 20150720
  Serious: No
  Sender: FDA-Public Use
  Company Number: US-JNJFOC-20141213771

PATIENT
  Sex: Female

DRUGS (1)
  1. INVEGA SUSTENNA [Suspect]
     Active Substance: PALIPERIDONE PALMITATE
     Indication: PRODUCT USED FOR UNKNOWN INDICATION
     Route: 030
     Dates: start: 201410, end: 20141210

REACTIONS (5)
  - Abdominal distension [Unknown]
  - Galactorrhoea [Unknown]
  - Vision blurred [Unknown]
  - Weight increased [Unknown]
  - Fatigue [Unknown]
